FAERS Safety Report 25276798 (Version 1)
Quarter: 2025Q2

REPORT INFORMATION
  Report Type: Spontaneous
  Country: DE (occurrence: DE)
  Receive Date: 20250507
  Receipt Date: 20250507
  Transmission Date: 20250717
  Serious: No
  Sender: ALKEM
  Company Number: None

PATIENT
  Age: 65 Year
  Sex: Male
  Weight: 69 kg

DRUGS (12)
  1. ROSUVASTATIN [Suspect]
     Active Substance: ROSUVASTATIN
     Indication: Hypercholesterolaemia
     Dosage: 10 MILLIGRAM, QD
     Route: 048
  2. ROSUVASTATIN [Suspect]
     Active Substance: ROSUVASTATIN
     Indication: Coronary artery disease
  3. ATORVASTATIN CALCIUM [Suspect]
     Active Substance: ATORVASTATIN CALCIUM
     Indication: Hypercholesterolaemia
     Dosage: 10 MILLIGRAM, QD
     Route: 048
  4. ATORVASTATIN CALCIUM [Suspect]
     Active Substance: ATORVASTATIN CALCIUM
     Indication: Coronary artery disease
  5. EZETIMIBE [Suspect]
     Active Substance: EZETIMIBE
     Indication: Hypercholesterolaemia
     Dosage: 10 MILLIGRAM, QD
     Route: 048
  6. EZETIMIBE [Suspect]
     Active Substance: EZETIMIBE
     Indication: Coronary artery disease
  7. LOVASTATIN [Suspect]
     Active Substance: LOVASTATIN
     Indication: Hypercholesterolaemia
     Route: 048
  8. LOVASTATIN [Suspect]
     Active Substance: LOVASTATIN
     Indication: Coronary artery disease
  9. BEMPEDOIC ACID\EZETIMIBE [Suspect]
     Active Substance: BEMPEDOIC ACID\EZETIMIBE
     Indication: Hypercholesterolaemia
     Dosage: 1 DOSAGE FORM, QD
     Route: 048
  10. BEMPEDOIC ACID\EZETIMIBE [Suspect]
     Active Substance: BEMPEDOIC ACID\EZETIMIBE
     Indication: Coronary artery disease
  11. SIMVASTATIN [Suspect]
     Active Substance: SIMVASTATIN
     Indication: Hypercholesterolaemia
     Dosage: 10 MILLIGRAM, QD
     Route: 048
  12. SIMVASTATIN [Suspect]
     Active Substance: SIMVASTATIN
     Indication: Coronary artery disease

REACTIONS (3)
  - Fatigue [Recovered/Resolved]
  - Myalgia [Recovered/Resolved]
  - Nausea [Recovered/Resolved]
